FAERS Safety Report 9230967 (Version 2)
Quarter: 2013Q2

REPORT INFORMATION
  Report Type: Report from Study
  Country: US (occurrence: US)
  Receive Date: 20130415
  Receipt Date: 20130502
  Transmission Date: 20140414
  Serious: Yes (Other)
  Sender: FDA-Public Use
  Company Number: US-ROCHE-1209632

PATIENT
  Age: 24 Year
  Sex: Female
  Weight: 110.32 kg

DRUGS (11)
  1. NUTROPIN [Suspect]
     Indication: GROWTH HORMONE DEFICIENCY
     Route: 058
     Dates: start: 20130330
  2. NUTROPIN [Suspect]
     Dosage: DOSE REDUCED
     Route: 065
  3. NUTROPIN [Suspect]
     Dosage: THERAPY WITH DEVICE (CARTRIDGE)
     Route: 058
     Dates: end: 20130330
  4. LEVOTHYROXINE [Concomitant]
     Indication: HYPOTHYROIDISM
     Route: 048
  5. DIVALPROEX [Concomitant]
     Indication: CONVULSION
     Route: 048
  6. PREMPRO [Concomitant]
     Indication: HYPOGONADISM
     Route: 048
  7. KEPPRA [Concomitant]
     Indication: CONVULSION
  8. LEXAPRO [Concomitant]
     Route: 065
  9. FLOVENT [Concomitant]
     Route: 065
  10. CROMOLYN INHALER [Concomitant]
  11. FLONASE [Concomitant]

REACTIONS (4)
  - Scoliosis [Unknown]
  - Incorrect dose administered [Unknown]
  - Insomnia [Unknown]
  - Weight increased [Not Recovered/Not Resolved]
